FAERS Safety Report 12209948 (Version 5)
Quarter: 2016Q2

REPORT INFORMATION
  Report Type: Report from Study
  Country: SG (occurrence: SG)
  Receive Date: 20160325
  Receipt Date: 20160617
  Transmission Date: 20160815
  Serious: No
  Sender: FDA-Public Use
  Company Number: SG-ROCHE-1727666

PATIENT
  Age: 79 Year
  Sex: Male
  Weight: 75.4 kg

DRUGS (4)
  1. ATEZOLIZUMAB [Suspect]
     Active Substance: ATEZOLIZUMAB
     Indication: NEOPLASM
     Dosage: MOST RECENT DOSE 800 MG OF ATEZOLIZUMAB WAS ADMINISTERED ON 01/MAR/2016 AT 1605 HOUR PRIOR TO AE ONS
     Route: 042
     Dates: start: 20160301
  2. COBIMETINIB [Suspect]
     Active Substance: COBIMETINIB
     Indication: NEOPLASM
     Dosage: MOST RECENT DOSE OF COBIMETINIB WAS ADMINISTERED ON 29/FEB/2016 AT 1430 PRIOR TO AE ONSET AT 60MG.
     Route: 048
     Dates: start: 20160216
  3. ANAREX (SINGAPORE) [Concomitant]
     Indication: BACK PAIN
     Route: 065
     Dates: start: 20160301, end: 20160314
  4. HYDROCORTISONE. [Concomitant]
     Active Substance: HYDROCORTISONE
     Indication: CONJUNCTIVITIS
     Route: 061
     Dates: start: 20160301

REACTIONS (1)
  - Pruritus [Recovered/Resolved]

NARRATIVE: CASE EVENT DATE: 20160315
